FAERS Safety Report 6969870-7 (Version None)
Quarter: 2010Q3

REPORT INFORMATION
  Report Type: 
  Country: None (occurrence: None)
  Receive Date: 20100902
  Receipt Date: 20100825
  Transmission Date: 20110219
  Serious: Yes (Other)
  Sender: FDA-Public Use
  Company Number: A0877824A

PATIENT
  Age: 52 Year
  Sex: Male

DRUGS (1)
  1. SODIUM FLUORIDE + POTASSIUM NITRATE (FORMULATION UNKNOWN) (SODIUM FLUO [Suspect]
     Indication: PRODUCT USED FOR UNKNOWN INDICATION
     Dosage: DENTAL
     Route: 004
     Dates: start: 20100801

REACTIONS (2)
  - DEAFNESS [None]
  - OTOTOXICITY [None]
